FAERS Safety Report 18393084 (Version 1)
Quarter: 2020Q4

REPORT INFORMATION
  Report Type: Spontaneous
  Country: US (occurrence: US)
  Receive Date: 20201016
  Receipt Date: 20201016
  Transmission Date: 20210114
  Serious: No
  Sender: FDA-Public Use
  Company Number: US-SA-2020SA289955

PATIENT

DRUGS (1)
  1. XYZAL [Suspect]
     Active Substance: LEVOCETIRIZINE DIHYDROCHLORIDE
     Indication: ANTIALLERGIC THERAPY
     Dosage: UNK

REACTIONS (6)
  - Dermatitis [Unknown]
  - Urticaria [Unknown]
  - Pruritus [Recovered/Resolved]
  - Swelling [Unknown]
  - Head discomfort [Unknown]
  - Wrong technique in product usage process [Unknown]
